FAERS Safety Report 8540651-6 (Version None)
Quarter: 2012Q3

REPORT INFORMATION
  Report Type: 
  Country: None (occurrence: None)
  Receive Date: 20120726
  Receipt Date: 20120713
  Transmission Date: 20120928
  Serious: Yes (Other)
  Sender: FDA-Public Use
  Company Number: FR-BRISTOL-MYERS SQUIBB COMPANY-16773590

PATIENT
  Age: 5 Decade
  Sex: Female

DRUGS (5)
  1. METFORMIN HCL [Concomitant]
  2. ASPIRIN [Concomitant]
  3. ATORVASTATIN [Suspect]
  4. ONGLYZA [Suspect]
     Indication: TYPE 2 DIABETES MELLITUS
     Dates: start: 20120101, end: 20120601
  5. PERINDOPRIL ERBUMINE [Concomitant]

REACTIONS (2)
  - CYTOLYTIC HEPATITIS [None]
  - LIPASE INCREASED [None]
